FAERS Safety Report 7908536-3 (Version None)
Quarter: 2011Q4

REPORT INFORMATION
  Report Type: 
  Country: None (occurrence: None)
  Receive Date: 20111111
  Receipt Date: 20111107
  Transmission Date: 20120403
  Serious: Yes (Hospitalization)
  Sender: FDA-Public Use
  Company Number: PHEH2011US008910

PATIENT
  Sex: Female

DRUGS (2)
  1. EXJADE [Suspect]
     Indication: THROMBOSIS
  2. EXJADE [Suspect]
     Indication: HAEMOLYTIC ANAEMIA
     Dosage: 2500 MG, DAILY
     Route: 048
     Dates: start: 20110728, end: 20111005

REACTIONS (1)
  - CEREBRAL HAEMORRHAGE [None]
